FAERS Safety Report 4897385-9 (Version None)
Quarter: 2006Q1

REPORT INFORMATION
  Report Type: 
  Country: None (occurrence: None)
  Receive Date: 20060130
  Receipt Date: 20060130
  Transmission Date: 20060701
  Serious: Yes (Life-Threatening, Hospitalization)
  Sender: FDA-Public Use
  Company Number: None

PATIENT
  Age: 76 Year
  Sex: Male
  Weight: 95.8 kg

DRUGS (4)
  1. WARFARIN [Suspect]
  2. LEUCOVORIN [Concomitant]
  3. OXALIPLATIN [Concomitant]
  4. FLUOROURCACIL [Concomitant]

REACTIONS (1)
  - NONSPECIFIC REACTION [None]
